FAERS Safety Report 21674484 (Version 4)
Quarter: 2023Q4

REPORT INFORMATION
  Report Type: Spontaneous
  Country: US (occurrence: US)
  Receive Date: 20221202
  Receipt Date: 20231221
  Transmission Date: 20240109
  Serious: No
  Sender: FDA-Public Use
  Company Number: US-PFIZER INC-PV202200113435

PATIENT
  Age: 82 Year
  Sex: Male

DRUGS (1)
  1. TIKOSYN [Suspect]
     Active Substance: DOFETILIDE
     Indication: Atrial fibrillation
     Dosage: 250 UG, 2X/DAY
     Route: 048

REACTIONS (3)
  - Sinus arrhythmia [Unknown]
  - Electrocardiogram PR prolongation [Unknown]
  - Off label use [Unknown]

NARRATIVE: CASE EVENT DATE: 20220531
